FAERS Safety Report 21903690 (Version 2)
Quarter: 2023Q1

REPORT INFORMATION
  Report Type: Spontaneous
  Country: US (occurrence: US)
  Receive Date: 20230124
  Receipt Date: 20230328
  Transmission Date: 20230417
  Serious: No
  Sender: FDA-Public Use
  Company Number: US-BAYER-2023A008001

PATIENT
  Age: 60 Year
  Sex: Female

DRUGS (1)
  1. CLARITIN-D 12 HOUR [Suspect]
     Active Substance: LORATADINE\PSEUDOEPHEDRINE SULFATE
     Dosage: 1 DF, QD (1 EVERY NIGHT))
     Route: 048
     Dates: start: 202301, end: 202301

REACTIONS (4)
  - Throat irritation [Unknown]
  - Suspected product quality issue [None]
  - Product taste abnormal [None]
  - Product odour abnormal [None]
